FAERS Safety Report 10167472 (Version 1)
Quarter: 2014Q2

REPORT INFORMATION
  Report Type: Spontaneous
  Country: DE (occurrence: DE)
  Receive Date: 20140512
  Receipt Date: 20140512
  Transmission Date: 20141212
  Serious: Yes (Other)
  Sender: FDA-Public Use
  Company Number: PHHY2014DE056837

PATIENT
  Age: 52 Year
  Sex: Female

DRUGS (1)
  1. LEPONEX [Suspect]
     Dosage: UNK
     Route: 048

REACTIONS (1)
  - Neoplasm [Unknown]
